FAERS Safety Report 17388651 (Version 4)
Quarter: 2020Q4

REPORT INFORMATION
  Report Type: Spontaneous
  Country: US (occurrence: US)
  Receive Date: 20200207
  Receipt Date: 20201015
  Transmission Date: 20210113
  Serious: Yes (Other)
  Sender: FDA-Public Use
  Company Number: US-PFIZER INC-2020054161

PATIENT
  Age: 72 Year
  Sex: Female
  Weight: 60.78 kg

DRUGS (1)
  1. XELJANZ XR [Suspect]
     Active Substance: TOFACITINIB CITRATE
     Indication: RHEUMATOID ARTHRITIS
     Dosage: 11 MG
     Dates: end: 202009

REACTIONS (5)
  - Pneumonia [Unknown]
  - Memory impairment [Unknown]
  - Bronchitis [Unknown]
  - Renal disorder [Unknown]
  - Illness [Recovered/Resolved]

NARRATIVE: CASE EVENT DATE: 201912
